FAERS Safety Report 5897270-X (Version None)
Quarter: 2008Q3

REPORT INFORMATION
  Report Type: 
  Country: None (occurrence: None)
  Receive Date: 20080924
  Receipt Date: 20080924
  Transmission Date: 20090109
  Serious: Yes (Death, Life-Threatening)
  Sender: FDA-Public Use
  Company Number: None

PATIENT
  Age: 65 Year
  Sex: Female

DRUGS (1)
  1. FLAGYL [Suspect]
     Indication: ENTEROCOCCAL INFECTION

REACTIONS (4)
  - DISCOMFORT [None]
  - DOCUMENTED HYPERSENSITIVITY TO ADMINISTERED DRUG [None]
  - HYPOAESTHESIA [None]
  - MEDICATION ERROR [None]
